FAERS Safety Report 13030641 (Version 3)
Quarter: 2017Q3

REPORT INFORMATION
  Report Type: Spontaneous
  Country: BR (occurrence: BR)
  Receive Date: 20161215
  Receipt Date: 20170710
  Transmission Date: 20171127
  Serious: Yes (Other)
  Sender: FDA-Public Use
  Company Number: BR-PFIZER INC-2016570474

PATIENT
  Age: 63 Year
  Sex: Female
  Weight: 53 kg

DRUGS (3)
  1. LOSARTAN. [Concomitant]
     Active Substance: LOSARTAN
     Indication: BLOOD PRESSURE INCREASED
     Dosage: UNK UNK, 1X/DAY
     Route: 048
     Dates: start: 2013
  2. PANTOPRAZOLE [Concomitant]
     Active Substance: PANTOPRAZOLE
     Indication: GASTROOESOPHAGEAL REFLUX DISEASE
     Dosage: UNK
     Route: 048
  3. XALATAN [Suspect]
     Active Substance: LATANOPROST
     Indication: GLAUCOMA
     Dosage: UNK, 1X/DAY (AT NIGHT)
     Dates: start: 2010

REACTIONS (7)
  - Breast cancer metastatic [Unknown]
  - Drug ineffective [Unknown]
  - Product storage error [Unknown]
  - Drug dose omission [Unknown]
  - Eye pain [Unknown]
  - Drug administration error [Unknown]
  - Expired product administered [Unknown]

NARRATIVE: CASE EVENT DATE: 201308
